FAERS Safety Report 5959258-X (Version None)
Quarter: 2008Q4

REPORT INFORMATION
  Report Type: 
  Country: None (occurrence: None)
  Receive Date: 20081120
  Receipt Date: 20081110
  Transmission Date: 20090506
  Serious: Yes (Hospitalization)
  Sender: FDA-Public Use
  Company Number: US-BAYER-200838442NA

PATIENT
  Age: 22 Year
  Sex: Female
  Weight: 77 kg

DRUGS (1)
  1. MIRENA [Suspect]
     Indication: CONTRACEPTION
     Route: 015
     Dates: start: 20071213, end: 20080101

REACTIONS (2)
  - INTRA-UTERINE CONTRACEPTIVE DEVICE EXPELLED [None]
  - VAGINAL HAEMORRHAGE [None]
